FAERS Safety Report 5803820-1 (Version None)
Quarter: 2008Q3

REPORT INFORMATION
  Report Type: 
  Country: None (occurrence: None)
  Receive Date: 20080708
  Receipt Date: 20080603
  Transmission Date: 20090109
  Serious: No
  Sender: FDA-Public Use
  Company Number: US-BOEHRINGER INGELHEIM GMBH, GERMANY-2008-BP-08687BP

PATIENT
  Age: 49 Year
  Sex: Male

DRUGS (1)
  1. FLOMAX [Suspect]
     Indication: MICTURITION DISORDER
     Dates: end: 20080101

REACTIONS (2)
  - DIZZINESS [None]
  - RHINORRHOEA [None]
